FAERS Safety Report 9567220 (Version 1)
Quarter: 2013Q3

REPORT INFORMATION
  Report Type: Spontaneous
  Country: US (occurrence: US)
  Receive Date: 20130930
  Receipt Date: 20130930
  Transmission Date: 20140515
  Serious: No
  Sender: FDA-Public Use
  Company Number: US-AMGEN-USASP2012062226

PATIENT
  Age: 52 Year
  Sex: Female
  Weight: 89.8 kg

DRUGS (5)
  1. ENBREL [Suspect]
     Indication: RHEUMATOID ARTHRITIS
     Dosage: 50 MG, QWK
     Route: 058
  2. METHOTREXATE [Concomitant]
     Dosage: 2.5 MG, UNK
  3. FOSAMAX [Concomitant]
     Dosage: 35 MG, UNK
  4. VITAMIN D                          /00107901/ [Concomitant]
     Dosage: 1000 UNIT, UNK
  5. CALCIUM +D                         /00944201/ [Concomitant]
     Dosage: UNK

REACTIONS (2)
  - Injection site haemorrhage [Unknown]
  - Injection site pain [Unknown]
